FAERS Safety Report 5334580-9 (Version None)
Quarter: 2007Q2

REPORT INFORMATION
  Report Type: 
  Country: None (occurrence: None)
  Receive Date: 20070525
  Receipt Date: 20070516
  Transmission Date: 20071010
  Serious: Yes (Other)
  Sender: FDA-Public Use
  Company Number: CN-JNJFOC-20070505991

PATIENT
  Age: 37 Year
  Sex: Female

DRUGS (4)
  1. ITRACONAZOLE [Suspect]
     Indication: LUNG INFECTION
     Route: 065
  2. VINDESINE [Interacting]
     Indication: ACUTE LYMPHOCYTIC LEUKAEMIA
     Route: 065
  3. IDARUBICIN HCL [Concomitant]
     Indication: ACUTE LYMPHOCYTIC LEUKAEMIA
     Route: 065
  4. DEXAMETHASONE [Concomitant]
     Indication: ACUTE LYMPHOCYTIC LEUKAEMIA
     Route: 065

REACTIONS (2)
  - DRUG INTERACTION [None]
  - NEUROTOXICITY [None]
